FAERS Safety Report 8461239-1 (Version None)
Quarter: 2012Q2

REPORT INFORMATION
  Report Type: 
  Country: None (occurrence: None)
  Receive Date: 20120323
  Receipt Date: 20111129
  Transmission Date: 20120825
  Serious: Yes (Other)
  Sender: FDA-Public Use
  Company Number: 163-21880-11102303

PATIENT
  Age: 84 Year
  Sex: Female

DRUGS (21)
  1. MARINOL [Concomitant]
  2. VESICARE [Concomitant]
  3. REVLIMID [Suspect]
     Indication: LYMPHOMA
     Dosage: 15 MG, 1 IN 1 D, PO
     Dates: start: 20110110
  4. KLOR-CON [Concomitant]
  5. INTERFERON [Concomitant]
  6. METOPROLOL TARTRATE [Concomitant]
  7. PRILOSEC [Concomitant]
  8. VITAMIN B12 [Concomitant]
  9. ASPIRIN [Concomitant]
  10. SYNTHROID [Concomitant]
  11. TRAMADOL HCL [Concomitant]
  12. VICODIN [Concomitant]
  13. FENTANYL [Concomitant]
  14. LEXAPRO [Concomitant]
  15. MULTIVITAMIN [Concomitant]
  16. RESTORIL [Concomitant]
  17. VYTORIN [Concomitant]
  18. ZOFRAN [Concomitant]
  19. CALCITRIOL [Concomitant]
  20. SENNA (SENNA) [Concomitant]
  21. ATIVAN [Concomitant]

REACTIONS (5)
  - WHITE BLOOD CELL COUNT DECREASED [None]
  - FULL BLOOD COUNT DECREASED [None]
  - RED BLOOD CELL COUNT DECREASED [None]
  - DIZZINESS [None]
  - NAUSEA [None]
